FAERS Safety Report 18627426 (Version 1)
Quarter: 2020Q4

REPORT INFORMATION
  Report Type: Spontaneous
  Country: US (occurrence: US)
  Receive Date: 20201216
  Receipt Date: 20201216
  Transmission Date: 20210114
  Serious: Yes (Hospitalization, Other)
  Sender: FDA-Public Use
  Company Number: None

PATIENT
  Age: 23 Year
  Sex: Female
  Weight: 54 kg

DRUGS (6)
  1. FLUTICASONE 24 HOUR NASAL SPRAY [Concomitant]
  2. PROMETHAZINE [Suspect]
     Active Substance: PROMETHAZINE HYDROCHLORIDE
     Indication: GASTRITIS
     Dosage: ?          QUANTITY:30 TABLET(S);?
     Route: 048
     Dates: start: 20201208, end: 20201209
  3. PHENERGAN [Suspect]
     Active Substance: PROMETHAZINE HYDROCHLORIDE
  4. PANTOPROZOLE [Concomitant]
     Active Substance: PANTOPRAZOLE SODIUM
  5. GINGIN GINGER CHEWS [Concomitant]
  6. FLO MULTIVITAMIN [Concomitant]

REACTIONS (13)
  - Anxiety [None]
  - Mydriasis [None]
  - Hyperhidrosis [None]
  - Tremor [None]
  - Hallucination [None]
  - Insomnia [None]
  - Bipolar disorder [None]
  - Panic attack [None]
  - Disorientation [None]
  - Psychotic disorder [None]
  - Vision blurred [None]
  - Tourette^s disorder [None]
  - Sinus tachycardia [None]

NARRATIVE: CASE EVENT DATE: 20201209
